FAERS Safety Report 16379352 (Version 2)
Quarter: 2019Q3

REPORT INFORMATION
  Report Type: Spontaneous
  Country: JP (occurrence: JP)
  Receive Date: 20190531
  Receipt Date: 20190702
  Transmission Date: 20191004
  Serious: Yes (Hospitalization)
  Sender: FDA-Public Use
  Company Number: PHJP2019JP005986

PATIENT
  Age: 89 Year
  Sex: Male

DRUGS (1)
  1. EXELON PATCH [Suspect]
     Active Substance: RIVASTIGMINE
     Indication: DEMENTIA ALZHEIMER^S TYPE
     Dosage: APPLIED 1.9 MG, QD (PATCH 2.5 CM2, 4.5 MG RIVASTIGMINE BASE AND 4.6 MG, QD (PATCH 5 CM2, 9 MG RIVAST
     Route: 062
     Dates: end: 201906

REACTIONS (2)
  - Pneumonia [Unknown]
  - Product administration error [Unknown]

NARRATIVE: CASE EVENT DATE: 201905
